FAERS Safety Report 8130162-4 (Version None)
Quarter: 2012Q1

REPORT INFORMATION
  Report Type: 
  Country: None (occurrence: None)
  Receive Date: 20120210
  Receipt Date: 20120202
  Transmission Date: 20120608
  Serious: Yes (Hospitalization)
  Sender: FDA-Public Use
  Company Number: US-ABBOTT-12P-163-0900683-00

PATIENT
  Sex: Male
  Weight: 108.96 kg

DRUGS (4)
  1. METHOTREXATE [Concomitant]
     Indication: RHEUMATOID ARTHRITIS
     Dates: end: 20110601
  2. NAPROXEN [Concomitant]
     Indication: RHEUMATOID ARTHRITIS
  3. HUMIRA [Suspect]
     Indication: RHEUMATOID ARTHRITIS
     Dates: start: 20110401, end: 20110601
  4. HUMIRA [Suspect]
     Dates: start: 20120101

REACTIONS (4)
  - HYPOTENSION [None]
  - NODULE [None]
  - STAPHYLOCOCCAL INFECTION [None]
  - LOCAL SWELLING [None]
